FAERS Safety Report 8463426-5 (Version None)
Quarter: 2012Q2

REPORT INFORMATION
  Report Type: 
  Country: None (occurrence: None)
  Receive Date: 20120625
  Receipt Date: 20120620
  Transmission Date: 20120825
  Serious: Yes (Hospitalization, Other)
  Sender: FDA-Public Use
  Company Number: US-MERCK-1203USA00792

PATIENT
  Age: 63 Year
  Sex: Female
  Weight: 70 kg

DRUGS (5)
  1. VITAMINS (UNSPECIFIED) [Concomitant]
     Dosage: TO PRESENT
     Route: 048
     Dates: start: 19990101
  2. FOSAMAX [Suspect]
     Route: 048
  3. FOSAMAX [Suspect]
     Indication: OSTEOPOROSIS
     Route: 048
     Dates: start: 19990403, end: 20090520
  4. CALCIUM (UNSPECIFIED) [Concomitant]
     Dosage: TO PRESENT
     Route: 065
     Dates: start: 19990101
  5. ISOTONIX OPC-3 [Concomitant]
     Dosage: TO PRESENT
     Route: 065
     Dates: start: 19990101

REACTIONS (32)
  - ARTHRITIS [None]
  - CONSTIPATION [None]
  - HYPERTENSION [None]
  - STRESS FRACTURE [None]
  - HYPOTENSION [None]
  - STRESS [None]
  - THALASSAEMIA BETA [None]
  - ANAEMIA POSTOPERATIVE [None]
  - ANXIETY [None]
  - CATARACT [None]
  - RASH [None]
  - PERNICIOUS ANAEMIA [None]
  - PELVIC FRACTURE [None]
  - INSOMNIA [None]
  - FALL [None]
  - LOW TURNOVER OSTEOPATHY [None]
  - RIB FRACTURE [None]
  - MENISCUS LESION [None]
  - JOINT DISLOCATION [None]
  - DRUG INEFFECTIVE [None]
  - DEPRESSION [None]
  - ROAD TRAFFIC ACCIDENT [None]
  - SPINAL FRACTURE [None]
  - VOMITING PROJECTILE [None]
  - INTERVERTEBRAL DISC PROTRUSION [None]
  - DEVICE FAILURE [None]
  - POST PROCEDURAL CONSTIPATION [None]
  - PERIORBITAL HAEMATOMA [None]
  - MALOCCLUSION [None]
  - CONTUSION [None]
  - FEMUR FRACTURE [None]
  - FRACTURE NONUNION [None]
